FAERS Safety Report 8717899 (Version 2)
Quarter: 2015Q2

REPORT INFORMATION
  Report Type: Report from Study
  Country: US (occurrence: US)
  Receive Date: 20120810
  Receipt Date: 20150629
  Transmission Date: 20150821
  Serious: Yes (Other)
  Sender: FDA-Public Use
  Company Number: US-ROCHE-1098826

PATIENT
  Age: 49 Year
  Sex: Female

DRUGS (11)
  1. ACTIVASE [Suspect]
     Active Substance: ALTEPLASE
     Route: 065
  2. ACTIVASE [Suspect]
     Active Substance: ALTEPLASE
     Indication: ARTERIOSCLEROSIS CORONARY ARTERY
     Route: 065
  3. XANAX [Concomitant]
     Active Substance: ALPRAZOLAM
     Route: 065
  4. INSULIN [Concomitant]
     Active Substance: INSULIN NOS
     Dosage: 15 UNITS
     Route: 058
  5. CARDIZEM [Concomitant]
     Active Substance: DILTIAZEM HYDROCHLORIDE
     Route: 065
  6. DIALOSE PLUS [Concomitant]
     Active Substance: CASANTHRANOL\DOCUSATE POTASSIUM
  7. K-DUR [Concomitant]
     Active Substance: POTASSIUM CHLORIDE
     Route: 065
  8. COMPAZINE [Concomitant]
     Active Substance: PROCHLORPERAZINE MALEATE
     Route: 065
  9. MAXZIDE [Concomitant]
     Active Substance: HYDROCHLOROTHIAZIDE\TRIAMTERENE
  10. ACTIVASE [Suspect]
     Active Substance: ALTEPLASE
     Indication: ACUTE MYOCARDIAL INFARCTION
     Route: 040
  11. TYLENOL [Concomitant]
     Active Substance: ACETAMINOPHEN

REACTIONS (4)
  - Chest pain [Unknown]
  - Gingival bleeding [Unknown]
  - Dyspepsia [Unknown]
  - Hyperhidrosis [Unknown]
